FAERS Safety Report 7119624-6 (Version None)
Quarter: 2010Q4

REPORT INFORMATION
  Report Type: 
  Country: None (occurrence: None)
  Receive Date: 20101123
  Receipt Date: 20101115
  Transmission Date: 20110411
  Serious: Yes (Hospitalization)
  Sender: FDA-Public Use
  Company Number: US-BRISTOL-MYERS SQUIBB COMPANY-15389703

PATIENT
  Age: 51 Year
  Sex: Male

DRUGS (4)
  1. CETUXIMAB [Suspect]
     Indication: NEOPLASM
     Route: 042
     Dates: start: 20101115, end: 20101101
  2. FENTANYL [Concomitant]
     Dates: start: 20101104
  3. DILAUDID [Concomitant]
     Dates: start: 20101007
  4. LYRICA [Concomitant]
     Dates: start: 20100710

REACTIONS (3)
  - CYTOKINE RELEASE SYNDROME [None]
  - GRAND MAL CONVULSION [None]
  - GROIN PAIN [None]
